FAERS Safety Report 4929189-2 (Version None)
Quarter: 2006Q1

REPORT INFORMATION
  Report Type: 
  Country: None (occurrence: None)
  Receive Date: 20060301
  Receipt Date: 20050209
  Transmission Date: 20060701
  Serious: Yes (Hospitalization, Disabling, Other)
  Sender: FDA-Public Use
  Company Number: US-MERCK-0502USA01345

PATIENT
  Age: 65 Year
  Sex: Female

DRUGS (5)
  1. VIOXX [Suspect]
     Indication: RHEUMATOID ARTHRITIS
     Route: 048
     Dates: start: 20010101, end: 20020101
  2. OS-CAL [Concomitant]
     Route: 065
  3. ESTRADIOL [Concomitant]
     Route: 065
  4. VITAMIN E [Concomitant]
     Route: 065
  5. ASCORBIC ACID [Concomitant]
     Route: 065

REACTIONS (10)
  - BRAIN DAMAGE [None]
  - CEREBROVASCULAR ACCIDENT [None]
  - CHEST DISCOMFORT [None]
  - DIVERTICULUM [None]
  - DYSPNOEA [None]
  - FREQUENT BOWEL MOVEMENTS [None]
  - HYPERTENSION [None]
  - NODULE [None]
  - PULMONARY EMBOLISM [None]
  - VENTRICULAR EXTRASYSTOLES [None]
